FAERS Safety Report 21697839 (Version 1)
Quarter: 2022Q4

REPORT INFORMATION
  Report Type: Report from Study
  Country: ES (occurrence: ES)
  Receive Date: 20221208
  Receipt Date: 20221208
  Transmission Date: 20230113
  Serious: Yes (Other)
  Sender: FDA-Public Use
  Company Number: ES-SUN PHARMACEUTICAL INDUSTRIES LTD-2022RR-367069

PATIENT
  Age: 57 Year
  Sex: Male

DRUGS (2)
  1. MORPHINE [Suspect]
     Active Substance: MORPHINE
     Indication: Oesophageal carcinoma
     Dosage: 3076 MILIGRAMS EQUIVALENTS, DAILY
     Route: 065
  2. FENTANYL [Suspect]
     Active Substance: FENTANYL
     Indication: Oesophageal carcinoma
     Dosage: 100 MICROGRAM, DAILY
     Route: 062

REACTIONS (2)
  - Hyperaesthesia [Unknown]
  - Drug abuse [Unknown]
